FAERS Safety Report 9854254 (Version 4)
Quarter: 2014Q3

REPORT INFORMATION
  Report Type: Report from Study
  Country: CA (occurrence: CA)
  Receive Date: 20140130
  Receipt Date: 20140711
  Transmission Date: 20150326
  Serious: Yes (Death, Life-Threatening, Other)
  Sender: FDA-Public Use
  Company Number: CA-ROCHE-1339670

PATIENT
  Age: 90 Year
  Sex: Male

DRUGS (9)
  1. ASAPHEN [Concomitant]
     Active Substance: ASPIRIN
  2. SENNOSIDE A+B [Concomitant]
     Active Substance: SENNOSIDES A AND B
     Route: 065
     Dates: start: 2008
  3. HYDROCHLOROTHIAZIDE. [Concomitant]
     Active Substance: HYDROCHLOROTHIAZIDE
     Route: 065
     Dates: start: 2010
  4. HYDROMORPH CONTIN [Concomitant]
     Active Substance: HYDROMORPHONE
  5. SYNTHROID [Concomitant]
     Active Substance: LEVOTHYROXINE SODIUM
     Route: 065
     Dates: start: 2000
  6. RAN-RABEPRAZOLE [Concomitant]
     Route: 065
     Dates: start: 2011
  7. PREGABALIN. [Concomitant]
     Active Substance: PREGABALIN
     Route: 065
     Dates: start: 2005
  8. DOCUSATE [Concomitant]
     Active Substance: DOCUSATE
     Route: 065
     Dates: start: 2008
  9. RANIBIZUMAB [Suspect]
     Active Substance: RANIBIZUMAB
     Indication: PRODUCT USED FOR UNKNOWN INDICATION
     Route: 050
     Dates: start: 20140117, end: 20140117

REACTIONS (3)
  - Pain in extremity [Unknown]
  - Death [Fatal]
  - Recurrent cancer [Not Recovered/Not Resolved]

NARRATIVE: CASE EVENT DATE: 20140507
